FAERS Safety Report 5894285-2 (Version None)
Quarter: 2008Q3

REPORT INFORMATION
  Report Type: 
  Country: None (occurrence: None)
  Receive Date: 20080923
  Receipt Date: 20080408
  Transmission Date: 20090109
  Serious: No
  Sender: FDA-Public Use
  Company Number: US-ASTRAZENECA-2008UW07244

PATIENT
  Age: 50 Year
  Sex: Female

DRUGS (1)
  1. SEROQUEL [Suspect]
     Dosage: 100 MG IN MORNING, 400 MG AT BEDTIME
     Route: 048

REACTIONS (2)
  - BRONCHIAL SECRETION RETENTION [None]
  - COUGH [None]
